FAERS Safety Report 15232722 (Version 6)
Quarter: 2020Q1

REPORT INFORMATION
  Report Type: Report from Study
  Country: JP (occurrence: JP)
  Receive Date: 20180802
  Receipt Date: 20200107
  Transmission Date: 20200409
  Serious: Yes (Hospitalization)
  Sender: FDA-Public Use
  Company Number: JP-EISAI MEDICAL RESEARCH-EC-2018-043570

PATIENT
  Age: 60 Year
  Sex: Male
  Weight: 58 kg

DRUGS (23)
  1. ACUATIM [Concomitant]
     Active Substance: NADIFLOXACIN
  2. PHOSRIBBON [Concomitant]
  3. HAEMOLEX [Concomitant]
  4. LENVATINIB [Suspect]
     Active Substance: LENVATINIB
     Route: 048
     Dates: start: 20180530, end: 20190403
  5. EVEROLIMUS. [Suspect]
     Active Substance: EVEROLIMUS
     Indication: RENAL CELL CARCINOMA
     Route: 048
     Dates: start: 20180222, end: 20180524
  6. NEXIUM [Concomitant]
     Active Substance: ESOMEPRAZOLE MAGNESIUM
  7. MIYA-BM [Concomitant]
     Active Substance: CLOSTRIDIUM BUTYRICUM SPORES STRAIN M-55
  8. ADALAT [Concomitant]
     Active Substance: NIFEDIPINE
  9. RINDERON VG [Concomitant]
     Active Substance: BETAMETHASONE VALERATE\GENTAMICIN SULFATE
  10. LENVATINIB [Suspect]
     Active Substance: LENVATINIB
     Indication: RENAL CELL CARCINOMA
     Route: 048
     Dates: start: 20180222, end: 20180524
  11. CRESTOR [Concomitant]
     Active Substance: ROSUVASTATIN CALCIUM
  12. ONEALFA [Concomitant]
     Active Substance: ALFACALCIDOL
  13. ASPARA POTASSIUM [Concomitant]
     Active Substance: POTASSIUM ASPARTATE
  14. EVEROLIMUS. [Suspect]
     Active Substance: EVEROLIMUS
     Route: 048
     Dates: start: 20180530, end: 20190403
  15. METFORMIN HYDROCHLORIDE. [Concomitant]
     Active Substance: METFORMIN HYDROCHLORIDE
  16. SUREPOST [Concomitant]
     Active Substance: REPAGLINIDE
  17. TRESIBA [Concomitant]
     Active Substance: INSULIN DEGLUDEC
  18. LOPERAMIDE [Concomitant]
     Active Substance: LOPERAMIDE
  19. HACHIAZULE [Concomitant]
  20. RANMARK [Concomitant]
     Active Substance: DENOSUMAB
  21. DENOTAS [Concomitant]
     Active Substance: CALCIUM CARBONATE\CHOLECALCIFEROL\MAGNESIUM CARBONATE
  22. THYRADIN [Concomitant]
     Active Substance: LEVOTHYROXINE
  23. TRAZENTA [Concomitant]
     Active Substance: LINAGLIPTIN

REACTIONS (2)
  - Diabetes mellitus [Not Recovered/Not Resolved]
  - Gastroenteritis [Recovered/Resolved]

NARRATIVE: CASE EVENT DATE: 20180731
